FAERS Safety Report 4362655-X (Version None)
Quarter: 2004Q2

REPORT INFORMATION
  Report Type: 
  Country: None (occurrence: None)
  Receive Date: 20040517
  Receipt Date: 20040325
  Transmission Date: 20050107
  Serious: No
  Sender: FDA-Public Use
  Company Number: S04-USA-01993-01

PATIENT
  Age: 65 Year
  Sex: Female

DRUGS (9)
  1. NAMENDA [Suspect]
     Indication: DEMENTIA
     Dosage: 5 MG QD PO
     Route: 048
     Dates: start: 20040320
  2. ARICEPT [Concomitant]
  3. REMINYL [Concomitant]
  4. KLONOPIN [Concomitant]
  5. KEPPRA [Concomitant]
  6. ZOLOFT [Concomitant]
  7. TRAZODONE HCL [Concomitant]
  8. STOOL SOFTENERS [Concomitant]
  9. MILD LAXATIVE (NOS) [Concomitant]

REACTIONS (1)
  - CONSTIPATION [None]
